FAERS Safety Report 13810383 (Version 2)
Quarter: 2017Q3

REPORT INFORMATION
  Report Type: Spontaneous
  Country: US (occurrence: US)
  Receive Date: 20170728
  Receipt Date: 20170803
  Transmission Date: 20171127
  Serious: Yes (Other)
  Sender: FDA-Public Use
  Company Number: US-PFIZER INC-2017326170

PATIENT
  Age: 76 Year
  Sex: Female

DRUGS (2)
  1. METHOTREXATE SODIUM. [Suspect]
     Active Substance: METHOTREXATE SODIUM
     Dosage: 4 DF, WEEKLY
  2. METHOTREXATE SODIUM. [Suspect]
     Active Substance: METHOTREXATE SODIUM
     Dosage: 6 DF, WEEKLY

REACTIONS (17)
  - Arthralgia [Unknown]
  - Blood pressure abnormal [Unknown]
  - Red blood cell sedimentation rate increased [Unknown]
  - Hand deformity [Unknown]
  - Pericardial effusion [Unknown]
  - Osteoarthritis [Unknown]
  - Joint stiffness [Unknown]
  - Gait disturbance [Unknown]
  - Pleural effusion [Unknown]
  - Rheumatoid nodule [Unknown]
  - Erythema [Unknown]
  - Tenderness [Unknown]
  - Joint range of motion decreased [Unknown]
  - Synovitis [Unknown]
  - Gout [Unknown]
  - Joint swelling [Unknown]
  - Pain in extremity [Unknown]
